FAERS Safety Report 8553761-4 (Version None)
Quarter: 2012Q3

REPORT INFORMATION
  Report Type: 
  Country: None (occurrence: None)
  Receive Date: 20120731
  Receipt Date: 20120726
  Transmission Date: 20120928
  Serious: Yes (Hospitalization, Disabling)
  Sender: FDA-Public Use
  Company Number: JP-GLAXOSMITHKLINE-B0807406A

PATIENT
  Sex: Female
  Weight: 40 kg

DRUGS (8)
  1. ATENOLOL [Concomitant]
     Route: 048
  2. SERMION [Concomitant]
     Route: 048
  3. ALFAROL [Concomitant]
     Route: 048
  4. TENORMIN [Concomitant]
     Route: 048
  5. VALTREX [Suspect]
     Indication: HERPES ZOSTER
     Dosage: 1000MG THREE TIMES PER DAY
     Route: 048
     Dates: start: 20120604, end: 20120608
  6. AMLODIPINE [Concomitant]
     Route: 048
  7. LANSOPRAZOLE [Concomitant]
     Route: 065
  8. CEFAZOLIN SODIUM [Concomitant]
     Route: 048

REACTIONS (9)
  - RENAL FAILURE ACUTE [None]
  - SPEECH DISORDER [None]
  - DELIRIUM [None]
  - COGNITIVE DISORDER [None]
  - RENAL DISORDER [None]
  - ALTERED STATE OF CONSCIOUSNESS [None]
  - ENCEPHALITIS [None]
  - MENINGITIS [None]
  - NERVOUS SYSTEM DISORDER [None]
